FAERS Safety Report 10205238 (Version 1)
Quarter: 2014Q2

REPORT INFORMATION
  Report Type: Spontaneous
  Country: DK (occurrence: CA)
  Receive Date: 20140529
  Receipt Date: 20140529
  Transmission Date: 20141212
  Serious: Yes (Hospitalization)
  Sender: FDA-Public Use
  Company Number: CA-FRI-1000067684

PATIENT
  Sex: Female

DRUGS (3)
  1. ESCITALOPRAM [Suspect]
     Dosage: 15 MG
  2. ESCITALOPRAM [Suspect]
     Dosage: 20 MG
  3. ESCITALOPRAM [Suspect]
     Dosage: 5 MG

REACTIONS (3)
  - Suicidal ideation [Unknown]
  - Dizziness [Unknown]
  - Head titubation [Unknown]
